FAERS Safety Report 9281692 (Version 1)
Quarter: 2013Q2

REPORT INFORMATION
  Report Type: Spontaneous
  Country: GB (occurrence: GB)
  Receive Date: 20130509
  Receipt Date: 20130509
  Transmission Date: 20140414
  Serious: Yes (Other)
  Sender: FDA-Public Use
  Company Number: GB-AMGEN-GBRSP2013017627

PATIENT
  Age: 74 Year
  Sex: Male
  Weight: 77.45 kg

DRUGS (8)
  1. ARANESP [Suspect]
     Indication: NEPHROGENIC ANAEMIA
     Dosage: 20 MUG, Q4WK
     Route: 058
     Dates: start: 20121004, end: 20130306
  2. ARANESP [Suspect]
  3. PREDNISOLONE [Concomitant]
     Dosage: 1 MG, QD
  4. VERAPAMIL [Concomitant]
     Dosage: 240 MG, QD
     Route: 048
  5. DOXAZOSIN [Concomitant]
     Dosage: 4 MG, QD
     Route: 048
  6. ALLOPURINOL [Concomitant]
     Dosage: 200 MG, QD
     Route: 048
  7. ONE ALPHA [Concomitant]
     Dosage: 0.5 MUG, QD
  8. CALCICHEW D3 [Concomitant]

REACTIONS (6)
  - Rash generalised [Recovering/Resolving]
  - Rash pruritic [Not Recovered/Not Resolved]
  - Fungal infection [Not Recovered/Not Resolved]
  - Rash [Not Recovered/Not Resolved]
  - Erythema [Not Recovered/Not Resolved]
  - Urticaria [Not Recovered/Not Resolved]
